FAERS Safety Report 6647452-4 (Version None)
Quarter: 2010Q1

REPORT INFORMATION
  Report Type: 
  Country: None (occurrence: None)
  Receive Date: 20100323
  Receipt Date: 20100323
  Transmission Date: 20100710
  Serious: Yes (Hospitalization)
  Sender: FDA-Public Use
  Company Number: None

PATIENT
  Age: 50 Year
  Sex: Female
  Weight: 71.6683 kg

DRUGS (3)
  1. CELEBREX [Suspect]
     Indication: INFLAMMATION
     Dosage: 200 MG TWICE A DAY PO, FOR SEVERAL YEARS
     Route: 048
  2. CELEBREX [Suspect]
     Indication: LUNG DISORDER
     Dosage: 200 MG TWICE A DAY PO, FOR SEVERAL YEARS
     Route: 048
  3. CELEBREX [Suspect]
     Indication: MUSCULOSKELETAL DISORDER
     Dosage: 200 MG TWICE A DAY PO, FOR SEVERAL YEARS
     Route: 048

REACTIONS (2)
  - GLOMERULONEPHRITIS MEMBRANOUS [None]
  - RENAL FAILURE CHRONIC [None]
